FAERS Safety Report 4338840-X (Version None)
Quarter: 2004Q2

REPORT INFORMATION
  Report Type: 
  Country: None (occurrence: None)
  Receive Date: 20040409
  Receipt Date: 20040326
  Transmission Date: 20050107
  Serious: Yes (Hospitalization)
  Sender: FDA-Public Use
  Company Number: 235575

PATIENT
  Sex: Male
  Weight: 1.9 kg

DRUGS (5)
  1. ACTRAPID PENFILL HM (GE) 3 ML (INSULIN HUMAN) SOLUTION FOR INJECTION, [Suspect]
     Indication: DIABETES MELLITUS INSULIN-DEPENDENT
     Dosage: 24 IU, QD, INTRAUTERINE
     Route: 015
     Dates: start: 20030603
  2. PROTAPHANE PENFILL  HM (GE) 3 ML (INSULIN HUMAN) SUSPENSION FOR INJECT [Concomitant]
  3. MARCAINE [Concomitant]
  4. ALDOMET [Concomitant]
  5. GLUCOSE [Concomitant]

REACTIONS (6)
  - CAESAREAN SECTION [None]
  - FOETAL DISORDER [None]
  - HYPERINSULINAEMIA [None]
  - HYPOGLYCAEMIA NEONATAL [None]
  - MATERNAL DRUGS AFFECTING FOETUS [None]
  - PREMATURE BABY [None]
